FAERS Safety Report 7442234 (Version 9)
Quarter: 2013Q2

REPORT INFORMATION
  Report Type: Report from Study
  Country: TW (occurrence: TW)
  Receive Date: 20100628
  Receipt Date: 20130611
  Transmission Date: 20140414
  Serious: Yes (Hospitalization)
  Sender: FDA-Public Use
  Company Number: PHHO2009TW03011

PATIENT
  Age: 62 Year
  Sex: Female
  Weight: 38.5 kg

DRUGS (10)
  1. EVEROLIMUS [Suspect]
     Indication: PANCREATIC NEUROENDOCRINE TUMOUR
     Dosage: 10 MG, QD
     Route: 048
     Dates: start: 20090217, end: 20090316
  2. EVEROLIMUS [Suspect]
     Dosage: 5 MG, UNK
     Route: 048
     Dates: start: 20090317, end: 20100628
  3. EVEROLIMUS [Suspect]
     Dosage: 5 MG, UNK
     Route: 048
     Dates: end: 20120123
  4. EVEROLIMUS [Suspect]
     Dosage: 5 MG, UNK
     Dates: start: 20120131
  5. CONCOR [Concomitant]
     Indication: HYPERTENSION
     Dosage: 2.5 MG, QD
     Route: 048
     Dates: start: 20100831
  6. APRESOLINE [Concomitant]
     Indication: HYPERTENSION
     Dosage: 150 MG, QD
     Route: 048
     Dates: start: 20111018
  7. STROCAIN [Concomitant]
     Indication: OESOPHAGITIS
     Dosage: UNK
     Route: 065
     Dates: start: 20111018
  8. STROCAIN [Concomitant]
     Indication: DUODENAL ULCER
  9. TAKEPRON [Concomitant]
     Indication: OESOPHAGITIS
     Route: 065
  10. TAKEPRON [Concomitant]
     Indication: DUODENAL ULCER

REACTIONS (6)
  - Peptic ulcer haemorrhage [Recovered/Resolved]
  - Melaena [Recovered/Resolved]
  - Anaemia [Recovered/Resolved]
  - Gastrointestinal haemorrhage [Not Recovered/Not Resolved]
  - Duodenal ulcer [Recovered/Resolved]
  - Gastric varices haemorrhage [Recovered/Resolved]
